FAERS Safety Report 19787218 (Version 2)
Quarter: 2021Q3

REPORT INFORMATION
  Report Type: Spontaneous
  Country: BE (occurrence: BE)
  Receive Date: 20210903
  Receipt Date: 20210930
  Transmission Date: 20211014
  Serious: Yes (Hospitalization, Other)
  Sender: FDA-Public Use
  Company Number: BE-PFIZER INC-202101100430

PATIENT
  Age: 63 Year
  Sex: Male
  Weight: 79 kg

DRUGS (7)
  1. CARBOPLATIN. [Suspect]
     Active Substance: CARBOPLATIN
     Dosage: ONCE EVERY 3 WEEKS (CYCLE 1?3), REGIMEN 1
     Route: 042
  2. EPCORITAMAB. [Suspect]
     Active Substance: EPCORITAMAB
     Dosage: 0.8 MG INTERMEDIATE DOSE
     Route: 058
     Dates: start: 20210811
  3. CYTARABINE. [Suspect]
     Active Substance: CYTARABINE
     Dosage: 2000 MG/M2 ONCE EVERY 3 WEEKS (CYCLE 1?3)
     Route: 042
     Dates: start: 20210805, end: 20210805
  4. DEXAMETHASONE. [Suspect]
     Active Substance: DEXAMETHASONE
     Dosage: 40 MG, 1X/DAY
     Route: 042
     Dates: start: 20210804, end: 20210807
  5. RITUXIMAB. [Suspect]
     Active Substance: RITUXIMAB
     Dosage: 375 MG/M2 ONCE EVERY 3 WEEKS (CYCLE 1?3)
     Route: 042
     Dates: start: 20210804
  6. CYTARABINE. [Suspect]
     Active Substance: CYTARABINE
     Dosage: 2000 MG/M2 ONCE EVERY 3 WEEKS (CYCLE 1?3)
     Route: 042
     Dates: start: 20210804, end: 20210804
  7. EPCORITAMAB. [Suspect]
     Active Substance: EPCORITAMAB
     Dosage: 0.16 MG SINGLE, PRIMING DOSE
     Route: 058
     Dates: start: 20210804, end: 20210804

REACTIONS (3)
  - Condition aggravated [Recovered/Resolved]
  - Tumour lysis syndrome [Not Recovered/Not Resolved]
  - Acute kidney injury [Recovered/Resolved]

NARRATIVE: CASE EVENT DATE: 20210807
